FAERS Safety Report 8294920-8 (Version None)
Quarter: 2012Q2

REPORT INFORMATION
  Report Type: 
  Country: None (occurrence: None)
  Receive Date: 20120418
  Receipt Date: 20120410
  Transmission Date: 20120825
  Serious: Yes (Other)
  Sender: FDA-Public Use
  Company Number: US-ABBOTT-12P-163-0925424-00

PATIENT
  Sex: Male
  Weight: 66.284 kg

DRUGS (1)
  1. HUMIRA [Suspect]
     Indication: PSORIASIS
     Dates: start: 20081201, end: 20120221

REACTIONS (4)
  - ABDOMINAL DISTENSION [None]
  - SARCOMA [None]
  - RETROPERITONEAL NEOPLASM [None]
  - LYMPHOMA [None]
